FAERS Safety Report 6809566-5 (Version None)
Quarter: 2010Q2

REPORT INFORMATION
  Report Type: 
  Country: None (occurrence: None)
  Receive Date: 20100630
  Receipt Date: 20100617
  Transmission Date: 20101027
  Serious: Yes (Hospitalization)
  Sender: FDA-Public Use
  Company Number: PHHY2010DE41481

PATIENT
  Sex: Male
  Weight: 99 kg

DRUGS (23)
  1. LEPONEX [Suspect]
     Dosage: 100 MG
     Route: 048
     Dates: start: 20090914
  2. LEPONEX [Suspect]
     Dosage: 200 MG
     Route: 048
     Dates: start: 20090915
  3. LEPONEX [Suspect]
     Dosage: 300 MG
     Route: 048
     Dates: start: 20090916, end: 20090918
  4. LEPONEX [Suspect]
     Dosage: 400 MG
     Route: 048
     Dates: start: 20090919, end: 20090920
  5. LEPONEX [Suspect]
     Dosage: 500 MG
     Route: 048
     Dates: start: 20090921, end: 20090924
  6. LEPONEX [Suspect]
     Dosage: 600 MG
     Route: 048
     Dates: start: 20090925, end: 20090930
  7. LEPONEX [Suspect]
     Dosage: 700 MG
     Route: 048
     Dates: start: 20091001, end: 20091005
  8. LEPONEX [Suspect]
     Dosage: 800 MG
     Route: 048
     Dates: start: 20091006, end: 20091013
  9. LEPONEX [Suspect]
     Dosage: 850 MG
     Route: 048
     Dates: start: 20091014, end: 20100118
  10. LEPONEX [Suspect]
     Dosage: 750 MG
     Route: 048
     Dates: start: 20100119, end: 20100126
  11. LEPONEX [Suspect]
     Dosage: 350 MG
     Route: 048
     Dates: start: 20100127, end: 20100128
  12. HALDOL [Suspect]
     Dosage: 10 MG
     Route: 048
     Dates: start: 20091023
  13. HALDOL [Suspect]
     Dosage: 15 MG
     Route: 048
     Dates: start: 20091024, end: 20091102
  14. HALDOL [Suspect]
     Dosage: 10 MG
     Route: 048
     Dates: start: 20091103, end: 20100119
  15. HALDOL [Suspect]
     Dosage: 5 MG
     Route: 048
     Dates: start: 20100120, end: 20100121
  16. LORAZEPAM [Concomitant]
     Dosage: 3.5 MG
     Route: 048
     Dates: start: 20090914
  17. LORAZEPAM [Concomitant]
     Dosage: 3 MG
     Route: 048
     Dates: start: 20090915, end: 20091012
  18. LORAZEPAM [Concomitant]
     Dosage: 4 MG
     Route: 048
     Dates: start: 20091013, end: 20091112
  19. LORAZEPAM [Concomitant]
     Dosage: 3 MG
     Route: 048
     Dates: start: 20091113, end: 20091215
  20. LORAZEPAM [Concomitant]
     Dosage: 2 MG
     Route: 048
     Dates: start: 20091216, end: 20100127
  21. LORAZEPAM [Concomitant]
     Dosage: 3 MG
     Route: 048
     Dates: start: 20100128, end: 20100203
  22. LORAZEPAM [Concomitant]
     Dosage: 4 MG
     Route: 048
     Dates: start: 20100204, end: 20100301
  23. VALPROAT [Concomitant]
     Dosage: UNK

REACTIONS (5)
  - AGRANULOCYTOSIS [None]
  - DYSPNOEA [None]
  - PHYSICAL DISABILITY [None]
  - SEDATION [None]
  - WEIGHT INCREASED [None]
